FAERS Safety Report 6550113-3 (Version None)
Quarter: 2010Q1

REPORT INFORMATION
  Report Type: 
  Country: None (occurrence: None)
  Receive Date: 20100125
  Receipt Date: 20100115
  Transmission Date: 20100710
  Serious: Yes (Hospitalization)
  Sender: FDA-Public Use
  Company Number: US-SANOFI-AVENTIS-2010SA003188

PATIENT
  Sex: Male

DRUGS (3)
  1. MULTAQ [Suspect]
     Indication: ATRIAL FIBRILLATION
     Route: 048
     Dates: start: 20100101
  2. COUMADIN [Suspect]
     Route: 065
  3. COUMADIN [Suspect]
     Route: 065
     Dates: start: 20100101

REACTIONS (1)
  - INTERNATIONAL NORMALISED RATIO INCREASED [None]
